FAERS Safety Report 25719527 (Version 1)
Quarter: 2025Q3

REPORT INFORMATION
  Report Type: Spontaneous
  Country: US (occurrence: US)
  Receive Date: 20250825
  Receipt Date: 20250825
  Transmission Date: 20251020
  Serious: No
  Sender: AMGEN
  Company Number: US-AMGEN-USASP2025159639

PATIENT
  Sex: Male
  Weight: 155 kg

DRUGS (3)
  1. NPLATE [Suspect]
     Active Substance: ROMIPLOSTIM
     Indication: Immune thrombocytopenia
     Route: 065
     Dates: start: 20250613
  2. NPLATE [Suspect]
     Active Substance: ROMIPLOSTIM
     Route: 065
     Dates: start: 20250711
  3. NPLATE [Suspect]
     Active Substance: ROMIPLOSTIM
     Route: 065
     Dates: start: 20250717

REACTIONS (2)
  - Drug effect less than expected [Unknown]
  - Platelet count increased [Recovering/Resolving]

NARRATIVE: CASE EVENT DATE: 20250701
